FAERS Safety Report 6526584-5 (Version None)
Quarter: 2010Q1

REPORT INFORMATION
  Report Type: 
  Country: None (occurrence: None)
  Receive Date: 20100105
  Receipt Date: 20091224
  Transmission Date: 20100710
  Serious: Yes (Hospitalization)
  Sender: FDA-Public Use
  Company Number: JP-AMGEN-US359933

PATIENT
  Sex: Male

DRUGS (5)
  1. ENBREL [Suspect]
     Indication: RHEUMATOID ARTHRITIS
     Route: 058
     Dates: start: 20081021, end: 20090730
  2. NIFLAN [Concomitant]
     Indication: ANALGESIC THERAPY
     Route: 048
     Dates: start: 20001024, end: 20090811
  3. TOYOFAROL [Concomitant]
     Indication: OSTEOPOROSIS PROPHYLAXIS
     Route: 048
     Dates: start: 20020413
  4. PREDNISOLONE [Concomitant]
     Indication: RHEUMATOID ARTHRITIS
     Dosage: UNSPECIFIED DOSE
     Route: 048
     Dates: start: 20001016
  5. ISCOTIN [Concomitant]
     Indication: ANTIBIOTIC PROPHYLAXIS
     Route: 048
     Dates: start: 20080527, end: 20090811

REACTIONS (6)
  - GASTRIC ULCER [None]
  - LIVER DISORDER [None]
  - LYMPHOMA [None]
  - OEDEMA PERIPHERAL [None]
  - TIC [None]
  - UPPER LIMB FRACTURE [None]
